FAERS Safety Report 5125341-4 (Version None)
Quarter: 2006Q4

REPORT INFORMATION
  Report Type: 
  Country: None (occurrence: None)
  Receive Date: 20061006
  Receipt Date: 20061002
  Transmission Date: 20070319
  Serious: Yes (Death, Hospitalization)
  Sender: FDA-Public Use
  Company Number: 163-20785-06080516

PATIENT

DRUGS (4)
  1. THALOMID [Suspect]
     Indication: MULTIPLE MYELOMA
     Dosage: 100 MG, 1 IN 1 D, ORAL
     Route: 048
     Dates: start: 20060320, end: 20060324
  2. DEXAMETHASONE TAB [Suspect]
     Indication: MULTIPLE MYELOMA
  3. PROCRIT [Concomitant]
  4. AREDIA [Concomitant]

REACTIONS (1)
  - GASTRIC ULCER PERFORATION [None]
